FAERS Safety Report 6543634-0 (Version None)
Quarter: 2010Q1

REPORT INFORMATION
  Report Type: 
  Country: None (occurrence: None)
  Receive Date: 20100119
  Receipt Date: 20100119
  Transmission Date: 20100710
  Serious: Yes (Hospitalization)
  Sender: FDA-Public Use
  Company Number: None

PATIENT
  Age: 68 Year
  Sex: Male
  Weight: 74.1 kg

DRUGS (3)
  1. GEMCITABINE [Suspect]
     Indication: PANCREATIC CARCINOMA
     Dosage: GEMCITEBINE Q 2 WKS IV
     Route: 042
     Dates: start: 20100107
  2. OXALIPLATIN [Suspect]
     Dosage: OXALIPLATIN Q2 WEK IV
     Route: 042
     Dates: start: 20100108
  3. ERLOTINIB [Suspect]
     Dosage: ERLOTINIB 5MG ORAL
     Route: 048
     Dates: start: 20100109, end: 20100111

REACTIONS (6)
  - CONFUSIONAL STATE [None]
  - DYSKINESIA [None]
  - INCORRECT DOSE ADMINISTERED [None]
  - MENTAL STATUS CHANGES [None]
  - NAUSEA [None]
  - PAIN [None]
